FAERS Safety Report 7586595-8 (Version None)
Quarter: 2011Q2

REPORT INFORMATION
  Report Type: 
  Country: None (occurrence: None)
  Receive Date: 20110603
  Receipt Date: 20110221
  Transmission Date: 20111010
  Serious: Yes (Other)
  Sender: FDA-Public Use
  Company Number: 2011SP008197

PATIENT
  Age: 35 Year
  Sex: Female

DRUGS (3)
  1. SAPHRIS [Suspect]
     Indication: BIPOLAR DISORDER
     Dosage: 10 MG
     Dates: start: 20101101, end: 20110214
  2. ABILIFY [Concomitant]
  3. LAMICTAL [Concomitant]

REACTIONS (2)
  - DYSKINESIA [None]
  - HYPERTONIA [None]
